FAERS Safety Report 6238480-1 (Version None)
Quarter: 2009Q2

REPORT INFORMATION
  Report Type: 
  Country: None (occurrence: None)
  Receive Date: 20090622
  Receipt Date: 20090612
  Transmission Date: 20091009
  Serious: Yes (Other)
  Sender: FDA-Public Use
  Company Number: US-ROCHE-638029

PATIENT
  Sex: Female
  Weight: 81.6 kg

DRUGS (1)
  1. CAPECITABINE [Suspect]
     Indication: BREAST CANCER
     Dosage: TWO TABLETS AM (1000 MG) AND THREE TABLETS PM (1500 MG)
     Route: 048
     Dates: start: 20081031, end: 20090601

REACTIONS (1)
  - MALIGNANT NEOPLASM PROGRESSION [None]
